FAERS Safety Report 24624881 (Version 1)
Quarter: 2024Q4

REPORT INFORMATION
  Report Type: Spontaneous
  Country: FR (occurrence: FR)
  Receive Date: 20241115
  Receipt Date: 20241115
  Transmission Date: 20250115
  Serious: Yes (Hospitalization)
  Sender: AUROBINDO
  Company Number: FR-AFSSAPS-PV2024000949

PATIENT
  Age: 35 Year
  Sex: Female
  Weight: 54.5 kg

DRUGS (1)
  1. LIDOCAINE [Suspect]
     Active Substance: LIDOCAINE
     Indication: Colonoscopy
     Dosage: UNK
     Route: 042
     Dates: start: 20241001, end: 20241001

REACTIONS (3)
  - Rash [Recovered/Resolved]
  - Contraindicated product prescribed [Recovered/Resolved]
  - Product prescribing error [Recovered/Resolved]

NARRATIVE: CASE EVENT DATE: 20241001
